FAERS Safety Report 22865677 (Version 4)
Quarter: 2024Q3

REPORT INFORMATION
  Report Type: Report from Study
  Country: US (occurrence: US)
  Receive Date: 20230825
  Receipt Date: 20240813
  Transmission Date: 20241017
  Serious: Yes (Other)
  Sender: NOVARTIS
  Company Number: US-002147023-NVSC2023US185241

PATIENT
  Sex: Male

DRUGS (1)
  1. LEQVIO [Suspect]
     Active Substance: INCLISIRAN SODIUM
     Indication: Product used for unknown indication
     Dosage: UNK
     Route: 058

REACTIONS (8)
  - Type 2 diabetes mellitus [Unknown]
  - Arthralgia [Not Recovered/Not Resolved]
  - Myalgia [Unknown]
  - Injection site pain [Unknown]
  - Blood cholesterol decreased [Unknown]
  - Coronary artery occlusion [Unknown]
  - High density lipoprotein decreased [Unknown]
  - Low density lipoprotein increased [Unknown]
